FAERS Safety Report 9348357 (Version 1)
Quarter: 2013Q2

REPORT INFORMATION
  Report Type: Spontaneous
  Country: US (occurrence: None)
  Receive Date: 20130613
  Receipt Date: 20130613
  Transmission Date: 20140414
  Serious: Yes (Death)
  Sender: FDA-Public Use
  Company Number: None

PATIENT
  Age: 74 Year
  Sex: Male

DRUGS (2)
  1. AVASTIN [Suspect]
     Indication: RETINAL VEIN OCCLUSION
     Dosage: 1  EVERY 4-6 WEEKS INTRAOCULAR
     Route: 031
     Dates: start: 20110323, end: 20121105
  2. AVASTIN [Suspect]
     Indication: MACULAR OEDEMA
     Dosage: 1  EVERY 4-6 WEEKS INTRAOCULAR
     Route: 031
     Dates: start: 20110323, end: 20121105

REACTIONS (1)
  - Death [None]
